FAERS Safety Report 15802961 (Version 1)
Quarter: 2019Q1

REPORT INFORMATION
  Report Type: Spontaneous
  Country: US (occurrence: US)
  Receive Date: 20190109
  Receipt Date: 20190109
  Transmission Date: 20190417
  Serious: No
  Sender: FDA-Public Use
  Company Number: US-BAYER-2019-006776

PATIENT
  Sex: Male
  Weight: 91 kg

DRUGS (2)
  1. MIRALAX [Suspect]
     Active Substance: POLYETHYLENE GLYCOL 3350
     Indication: GASTROINTESTINAL DISORDER
     Dosage: 17 G, TIW
     Route: 048
     Dates: start: 201801
  2. MIRALAX [Suspect]
     Active Substance: POLYETHYLENE GLYCOL 3350
     Indication: GASTROINTESTINAL DISORDER
     Dosage: 17 G, TIW
     Route: 048
     Dates: start: 2018

REACTIONS (4)
  - Product taste abnormal [Unknown]
  - Product taste abnormal [Unknown]
  - Poor quality product administered [None]
  - Poor quality product administered [None]

NARRATIVE: CASE EVENT DATE: 201812
